FAERS Safety Report 16374828 (Version 3)
Quarter: 2021Q4

REPORT INFORMATION
  Report Type: Spontaneous
  Country: CZ (occurrence: CZ)
  Receive Date: 20190530
  Receipt Date: 20211020
  Transmission Date: 20220303
  Serious: Yes (Life-Threatening, Other)
  Sender: FDA-Public Use
  Company Number: CZ-002147023-PHHY2019CZ114948

PATIENT

DRUGS (1)
  1. RUXOLITINIB [Suspect]
     Active Substance: RUXOLITINIB
     Indication: Polycythaemia vera
     Dosage: UNK
     Route: 065
     Dates: start: 20150907

REACTIONS (6)
  - Red blood cell count increased [Unknown]
  - Haematocrit increased [Unknown]
  - White blood cell count increased [Unknown]
  - Splenomegaly [Unknown]
  - Platelet count increased [Unknown]
  - Vertigo [Recovering/Resolving]

NARRATIVE: CASE EVENT DATE: 20150101
